FAERS Safety Report 7325904-1 (Version None)
Quarter: 2011Q1

REPORT INFORMATION
  Report Type: 
  Country: None (occurrence: None)
  Receive Date: 20110216
  Receipt Date: 20110208
  Transmission Date: 20110831
  Serious: Yes (Other)
  Sender: FDA-Public Use
  Company Number: 2011SP006293

PATIENT
  Age: 60 Year
  Sex: Female

DRUGS (7)
  1. INTRON A [Suspect]
     Indication: HEPATITIS C
     Dosage: 3 MIU;TIW;SC
     Route: 058
     Dates: start: 19951201, end: 19960701
  2. URSODIOL [Concomitant]
  3. SPECIAFOLDINE [Concomitant]
  4. REBETOL [Suspect]
     Indication: HEPATITIS C
     Dosage: 1 GM;QD
     Dates: start: 19980501, end: 19990101
  5. TARDYFERON (FERROUS SULFATE /00023503/) [Suspect]
     Indication: ANAEMIA
     Dosage: 80 MG;BID
     Dates: start: 19980501, end: 19981101
  6. AMANTADINE HCL [Concomitant]
  7. PEGINTERFERON ALFA-2B [Suspect]
     Indication: HEPATITIS C
     Dates: start: 20010301, end: 20011201

REACTIONS (4)
  - IRON OVERLOAD [None]
  - ANAEMIA [None]
  - CYTOLYTIC HEPATITIS [None]
  - RASH [None]
